FAERS Safety Report 25817913 (Version 1)
Quarter: 2025Q3

REPORT INFORMATION
  Report Type: Spontaneous
  Country: CN (occurrence: CN)
  Receive Date: 20250918
  Receipt Date: 20250918
  Transmission Date: 20251021
  Serious: Yes (Other)
  Sender: NOVO NORDISK
  Company Number: CN-NOVOPROD-1519717

PATIENT
  Age: 81 Year
  Sex: Male
  Weight: 89 kg

DRUGS (5)
  1. NOVORAPID [Suspect]
     Active Substance: INSULIN ASPART
     Indication: Type 2 diabetes mellitus
  2. NOVORAPID [Suspect]
     Active Substance: INSULIN ASPART
  3. XULTOPHY 100/3.6 [Suspect]
     Active Substance: INSULIN DEGLUDEC\LIRAGLUTIDE
     Indication: Type 2 diabetes mellitus
  4. XULTOPHY 100/3.6 [Suspect]
     Active Substance: INSULIN DEGLUDEC\LIRAGLUTIDE
     Dates: start: 20250814
  5. METFORMIN [Concomitant]
     Active Substance: METFORMIN HYDROCHLORIDE
     Indication: Type 2 diabetes mellitus

REACTIONS (7)
  - Hypoaesthesia [Unknown]
  - Peripheral swelling [Unknown]
  - Cerebral infarction [Unknown]
  - Cerebral atrophy [Unknown]
  - Eye haemorrhage [Unknown]
  - Visual impairment [Unknown]
  - Neuropathy peripheral [Unknown]
